FAERS Safety Report 25619340 (Version 1)
Quarter: 2025Q3

REPORT INFORMATION
  Report Type: Report from Study
  Country: US (occurrence: US)
  Receive Date: 20250729
  Receipt Date: 20250729
  Transmission Date: 20251020
  Serious: Yes (Other)
  Sender: ALEXION PHARMACEUTICALS
  Company Number: US-AstraZeneca-CH-00917266A

PATIENT
  Sex: Male

DRUGS (1)
  1. ULTOMIRIS [Suspect]
     Active Substance: RAVULIZUMAB-CWVZ
     Indication: Myasthenia gravis

REACTIONS (13)
  - Loss of consciousness [Unknown]
  - Feeling abnormal [Unknown]
  - Dysphonia [Unknown]
  - Dyspnoea [Unknown]
  - Quality of life decreased [Unknown]
  - Gait disturbance [Unknown]
  - Pain [Unknown]
  - Hyperhidrosis [Unknown]
  - Facial pain [Unknown]
  - Hand deformity [Unknown]
  - Knee deformity [Unknown]
  - Moaning [Unknown]
  - Arthralgia [Unknown]
